FAERS Safety Report 10210810 (Version 1)
Quarter: 2014Q2

REPORT INFORMATION
  Report Type: Spontaneous
  Country: US (occurrence: US)
  Receive Date: 20140602
  Receipt Date: 20140602
  Transmission Date: 20141212
  Serious: No
  Sender: FDA-Public Use
  Company Number: US-TEVA-485503USA

PATIENT
  Age: 33 Year
  Sex: Female
  Weight: 70.82 kg

DRUGS (4)
  1. PARAGARD 380A [Suspect]
     Indication: CONTRACEPTION
     Route: 015
     Dates: start: 200502
  2. LEVOTHYROXINE [Concomitant]
     Indication: THYROID DISORDER
  3. HYDROCORTISONE [Concomitant]
     Indication: PITUITARY TUMOUR REMOVAL
     Route: 048
  4. LISINOPRIL [Concomitant]
     Indication: HYPERTENSION

REACTIONS (1)
  - Menstruation delayed [Not Recovered/Not Resolved]
